FAERS Safety Report 10090682 (Version 1)
Quarter: 2014Q2

REPORT INFORMATION
  Report Type: Spontaneous
  Country: GB (occurrence: GB)
  Receive Date: 20140421
  Receipt Date: 20140421
  Transmission Date: 20141212
  Serious: Yes (Death, Other)
  Sender: FDA-Public Use
  Company Number: GB-INCYTE CORPORATION-2014IN001031

PATIENT
  Sex: Male

DRUGS (1)
  1. JAKAVI [Suspect]
     Dosage: UNK UNK, UNK
     Route: 065

REACTIONS (2)
  - Pulmonary embolism [Fatal]
  - Retroperitoneal haemorrhage [Unknown]
